FAERS Safety Report 21103965 (Version 1)
Quarter: 2022Q3

REPORT INFORMATION
  Report Type: Spontaneous
  Country: US (occurrence: US)
  Receive Date: 20220720
  Receipt Date: 20220720
  Transmission Date: 20221027
  Serious: Yes (Other)
  Sender: FDA-Public Use
  Company Number: US-SUN PHARMACEUTICAL INDUSTRIES LTD-2022R1-344953

PATIENT
  Age: 62 Year
  Sex: Male

DRUGS (1)
  1. LITHIUM [Suspect]
     Active Substance: LITHIUM
     Indication: Mania
     Dosage: UNK
     Route: 065

REACTIONS (4)
  - Toxicity to various agents [Unknown]
  - Tremor [Recovered/Resolved]
  - Disorientation [Recovered/Resolved]
  - Dysarthria [Recovered/Resolved]
